FAERS Safety Report 7977463 (Version 3)
Quarter: 2012Q4

REPORT INFORMATION
  Report Type: 
  Country: US (occurrence: US)
  Receive Date: 20110607
  Receipt Date: 20121101
  Transmission Date: 20130627
  Serious: No
  Sender: FDA-Public Use
  Company Number: US-ASTRAZENECA-2011SE01444

PATIENT
  Age: 64 Year
  Sex: Male
  Weight: 102.1 kg

DRUGS (21)
  1. NEXIUM [Suspect]
     Route: 048
  2. PRILOSEC [Suspect]
     Indication: DYSPEPSIA
     Dosage: GENERIC, THREE TIMES
     Route: 048
  3. PRILOSEC [Suspect]
     Indication: GASTROOESOPHAGEAL REFLUX DISEASE
     Dosage: GENERIC, THREE TIMES
     Route: 048
  4. PRILOSEC [Suspect]
     Indication: DYSPEPSIA
     Route: 048
     Dates: start: 2000
  5. PRILOSEC [Suspect]
     Indication: GASTROOESOPHAGEAL REFLUX DISEASE
     Route: 048
     Dates: start: 2000
  6. PRILOSEC [Suspect]
     Indication: DYSPEPSIA
     Route: 048
  7. PRILOSEC [Suspect]
     Indication: GASTROOESOPHAGEAL REFLUX DISEASE
     Route: 048
  8. CRESTOR [Suspect]
     Route: 048
  9. ZOCOR [Suspect]
     Route: 065
  10. ALLEGRA [Concomitant]
     Dosage: GENERIC
  11. ALLOPURINOL [Concomitant]
  12. SINGULAIR [Concomitant]
     Route: 048
  13. HYTRIN [Concomitant]
     Dosage: GENERIC
  14. FLONASE [Concomitant]
  15. ZPAK [Concomitant]
     Dosage: GENERIC
  16. MUCINEX [Concomitant]
  17. VITAMIN D [Concomitant]
  18. TERAZOSIN [Concomitant]
     Dosage: GENERIC
  19. FEXOFENADINE [Concomitant]
  20. DITROPAN [Concomitant]
  21. PARAFON FORTE [Concomitant]

REACTIONS (21)
  - Diabetes mellitus [Unknown]
  - Gastritis bacterial [Unknown]
  - Adverse event [Recovered/Resolved]
  - Erectile dysfunction [Unknown]
  - Gastrooesophageal reflux disease [Unknown]
  - Blood cholesterol increased [Unknown]
  - Muscle spasms [Unknown]
  - Drug hypersensitivity [Unknown]
  - Dyspepsia [Unknown]
  - Influenza like illness [Unknown]
  - Burning sensation [Unknown]
  - Pollakiuria [Unknown]
  - Nightmare [Unknown]
  - Flushing [Unknown]
  - Paraesthesia [Unknown]
  - Pruritus [Unknown]
  - Pruritus [Unknown]
  - Drug ineffective [Unknown]
  - Off label use [Unknown]
  - Drug dose omission [Recovered/Resolved]
  - Intentional drug misuse [Unknown]
